FAERS Safety Report 10261308 (Version 1)
Quarter: 2014Q2

REPORT INFORMATION
  Report Type: Spontaneous
  Country: JP (occurrence: JP)
  Receive Date: 20140626
  Receipt Date: 20140626
  Transmission Date: 20141212
  Serious: Yes (Death, Other)
  Sender: FDA-Public Use
  Company Number: JP-JNJFOC-20140604759

PATIENT
  Age: 67 Year
  Sex: Male

DRUGS (9)
  1. ITRIZOLE [Suspect]
     Indication: ASPERGILLUS INFECTION
     Route: 048
     Dates: end: 20140526
  2. ITRIZOLE [Suspect]
     Indication: ASPERGILLUS INFECTION
     Route: 048
     Dates: start: 20140603
  3. ITRIZOLE [Suspect]
     Indication: ASPERGILLUS INFECTION
     Route: 048
     Dates: start: 20140527, end: 20140602
  4. MYSLEE [Concomitant]
     Route: 048
  5. MAGLAX [Concomitant]
     Route: 048
  6. TAKEPRON [Concomitant]
     Route: 048
  7. DECADRON [Concomitant]
     Route: 048
  8. BONALON [Concomitant]
     Route: 048
  9. LOXONIN [Concomitant]
     Route: 048

REACTIONS (2)
  - Squamous cell carcinoma of lung [Fatal]
  - White blood cell count decreased [Recovering/Resolving]
